FAERS Safety Report 10285185 (Version 29)
Quarter: 2019Q1

REPORT INFORMATION
  Report Type: Report from Study
  Country: CA (occurrence: CA)
  Receive Date: 20140708
  Receipt Date: 20190124
  Transmission Date: 20190417
  Serious: Yes (Hospitalization, Other)
  Sender: FDA-Public Use
  Company Number: CA-ROCHE-1267909

PATIENT
  Age: 49 Year
  Sex: Female
  Weight: 79 kg

DRUGS (15)
  1. METHOTREXATE. [Suspect]
     Active Substance: METHOTREXATE
     Indication: PRODUCT USED FOR UNKNOWN INDICATION
     Route: 065
  2. ACETAMINOPHEN. [Concomitant]
     Active Substance: ACETAMINOPHEN
     Indication: PREMEDICATION
     Route: 048
     Dates: start: 20180628
  3. ACTEMRA [Suspect]
     Active Substance: TOCILIZUMAB
     Route: 042
     Dates: start: 20171214
  4. PREVACID [Concomitant]
     Active Substance: LANSOPRAZOLE
  5. SULFASALAZINE. [Concomitant]
     Active Substance: SULFASALAZINE
  6. DIPHENHYDRAMINE. [Concomitant]
     Active Substance: DIPHENHYDRAMINE
     Indication: PREMEDICATION
     Route: 048
     Dates: start: 20180628
  7. ACTEMRA [Suspect]
     Active Substance: TOCILIZUMAB
     Route: 042
     Dates: start: 20150923
  8. NAPROXEN. [Concomitant]
     Active Substance: NAPROXEN
  9. ACTEMRA [Suspect]
     Active Substance: TOCILIZUMAB
     Indication: RHEUMATOID ARTHRITIS
     Route: 042
     Dates: start: 20121121, end: 20170321
  10. RITUXAN [Suspect]
     Active Substance: RITUXIMAB
     Indication: RHEUMATOID ARTHRITIS
     Dosage: ONGOING
     Route: 042
     Dates: start: 20171121
  11. LEUCOVORIN. [Concomitant]
     Active Substance: LEUCOVORIN
  12. TYLENOL [Concomitant]
     Active Substance: ACETAMINOPHEN
  13. ACTEMRA [Suspect]
     Active Substance: TOCILIZUMAB
     Route: 042
     Dates: start: 20140219
  14. ACTEMRA [Suspect]
     Active Substance: TOCILIZUMAB
     Route: 042
     Dates: start: 20161004
  15. METHYLPREDNISOLONE. [Concomitant]
     Active Substance: METHYLPREDNISOLONE
     Indication: PREMEDICATION
     Route: 042
     Dates: start: 20180628

REACTIONS (22)
  - Hernia [Recovered/Resolved]
  - Asthma [Not Recovered/Not Resolved]
  - Bronchitis viral [Recovered/Resolved]
  - Diverticulitis [Recovered/Resolved]
  - Infection [Not Recovered/Not Resolved]
  - Pain in extremity [Not Recovered/Not Resolved]
  - Bursitis [Unknown]
  - Abdominal hernia [Recovered/Resolved]
  - Oedema peripheral [Not Recovered/Not Resolved]
  - Blood pressure fluctuation [Unknown]
  - Cough [Recovering/Resolving]
  - Blood pressure systolic increased [Unknown]
  - Nodule [Unknown]
  - Blood pressure increased [Unknown]
  - Nasopharyngitis [Not Recovered/Not Resolved]
  - Pyrexia [Recovered/Resolved]
  - Blood pressure systolic abnormal [Unknown]
  - Wound [Recovering/Resolving]
  - Ovarian fibroma [Recovered/Resolved]
  - Blood pressure diastolic increased [Unknown]
  - Rheumatoid nodule [Unknown]
  - Oxygen saturation decreased [Unknown]

NARRATIVE: CASE EVENT DATE: 20140703
